FAERS Safety Report 5964440-1 (Version None)
Quarter: 2008Q4

REPORT INFORMATION
  Report Type: 
  Country: None (occurrence: None)
  Receive Date: 20081122
  Receipt Date: 20081122
  Transmission Date: 20090506
  Serious: Yes (Hospitalization)
  Sender: FDA-Public Use
  Company Number: None

PATIENT
  Sex: Female
  Weight: 86.6 kg

DRUGS (2)
  1. HERCEPTIN [Suspect]
     Dosage: 516 MG
     Dates: start: 20081020, end: 20081024
  2. TAXOL [Suspect]
     Dosage: 0 MG
     Dates: end: 20080813

REACTIONS (1)
  - CARDIAC FAILURE CONGESTIVE [None]
